FAERS Safety Report 10597616 (Version 2)
Quarter: 2014Q4

REPORT INFORMATION
  Report Type: Report from Study
  Country: US (occurrence: US)
  Receive Date: 20141121
  Receipt Date: 20141215
  Transmission Date: 20150529
  Serious: Yes (Other)
  Sender: FDA-Public Use
  Company Number: US-BIOGENIDEC-2014BI120887

PATIENT
  Sex: Male

DRUGS (1)
  1. AVONEX [Suspect]
     Active Substance: INTERFERON BETA-1A
     Indication: MULTIPLE SCLEROSIS
     Route: 030
     Dates: start: 20130221, end: 201403

REACTIONS (5)
  - Overdose [Unknown]
  - Muscle spasms [Not Recovered/Not Resolved]
  - Injection site pain [Recovered/Resolved]
  - Spinal fusion surgery [Not Recovered/Not Resolved]
  - Nerve injury [Not Recovered/Not Resolved]
